FAERS Safety Report 7830084-X (Version None)
Quarter: 2011Q4

REPORT INFORMATION
  Report Type: 
  Country: None (occurrence: None)
  Receive Date: 20111021
  Receipt Date: 20111012
  Transmission Date: 20120403
  Serious: Yes (Hospitalization)
  Sender: FDA-Public Use
  Company Number: US-US-EMD SERONO, INC.-7086256

PATIENT
  Sex: Female
  Weight: 122 kg

DRUGS (8)
  1. ALPRAZOLAM [Concomitant]
  2. PROVIGIL [Concomitant]
  3. VESICARE [Concomitant]
  4. REBIF [Suspect]
     Indication: MULTIPLE SCLEROSIS
     Dates: start: 20110927, end: 20110929
  5. FLUOXETINE [Concomitant]
  6. INTRAVENOUS STEROIDS [Concomitant]
     Dates: start: 20110818, end: 20110822
  7. ALEVE [Concomitant]
     Indication: PREMEDICATION
  8. BENADRYL [Concomitant]
     Indication: URTICARIA

REACTIONS (6)
  - VOMITING [None]
  - RETCHING [None]
  - THROAT TIGHTNESS [None]
  - INJECTION SITE PAIN [None]
  - WHITE BLOOD CELL COUNT DECREASED [None]
  - SOMNOLENCE [None]
